FAERS Safety Report 8352231-6 (Version None)
Quarter: 2012Q2

REPORT INFORMATION
  Report Type: 
  Country: None (occurrence: None)
  Receive Date: 20120511
  Receipt Date: 20120507
  Transmission Date: 20120825
  Serious: Yes (Death, Other)
  Sender: FDA-Public Use
  Company Number: US-CELGENEUS-163-21880-12050815

PATIENT

DRUGS (1)
  1. REVLIMID [Suspect]
     Route: 065

REACTIONS (3)
  - FEBRILE NEUTROPENIA [None]
  - DEATH [None]
  - PNEUMONIA [None]
